FAERS Safety Report 19152431 (Version 1)
Quarter: 2021Q2

REPORT INFORMATION
  Report Type: Spontaneous
  Country: US (occurrence: US)
  Receive Date: 20210416
  Receipt Date: 20210416
  Transmission Date: 20210717
  Serious: Yes (Hospitalization)
  Sender: FDA-Public Use
  Company Number: None

PATIENT
  Age: 86 Year
  Sex: Female
  Weight: 82.5 kg

DRUGS (3)
  1. ETESEVIMAB. [Suspect]
     Active Substance: ETESEVIMAB
     Indication: COVID-19
     Dosage: ?          OTHER FREQUENCY:ONCE;?
     Route: 040
     Dates: start: 20210410, end: 20210410
  2. BAMLANIVIMAB. [Suspect]
     Active Substance: BAMLANIVIMAB
     Indication: COVID-19
     Route: 040
     Dates: start: 20210410, end: 20210410
  3. SODIUM CHLORIDE 0.9 % INFUSION [Concomitant]
     Dates: start: 20210410, end: 20210410

REACTIONS (4)
  - Syncope [None]
  - Illness [None]
  - Unresponsive to stimuli [None]
  - Atrial fibrillation [None]

NARRATIVE: CASE EVENT DATE: 20210411
